FAERS Safety Report 14366152 (Version 3)
Quarter: 2018Q1

REPORT INFORMATION
  Report Type: Report from Study
  Country: CO (occurrence: CO)
  Receive Date: 20180109
  Receipt Date: 20180316
  Transmission Date: 20180509
  Serious: Yes (Life-Threatening, Hospitalization, Other)
  Sender: FDA-Public Use
  Company Number: CO-AMGEN-COLSL2018001142

PATIENT
  Age: 73 Year
  Sex: Female

DRUGS (2)
  1. KYPROLIS [Suspect]
     Active Substance: CARFILZOMIB
     Dosage: UNK, QWK (DOSE REDUCED)
     Route: 042
     Dates: start: 2017, end: 20180126
  2. KYPROLIS [Suspect]
     Active Substance: CARFILZOMIB
     Indication: PLASMA CELL MYELOMA
     Dosage: UNK (OTHER)
     Route: 042
     Dates: start: 20170926, end: 2017

REACTIONS (10)
  - Renal failure [Recovered/Resolved]
  - Treatment failure [Unknown]
  - Cardiac disorder [Recovering/Resolving]
  - Cardiac failure [Recovered/Resolved]
  - Hypovolaemic shock [Recovered/Resolved]
  - Off label use [Unknown]
  - Vomiting [Recovered/Resolved]
  - Decreased appetite [Recovered/Resolved]
  - Diarrhoea [Recovered/Resolved]
  - Platelet count decreased [Unknown]

NARRATIVE: CASE EVENT DATE: 2017
